FAERS Safety Report 8071531-0 (Version None)
Quarter: 2012Q1

REPORT INFORMATION
  Report Type: 
  Country: None (occurrence: None)
  Receive Date: 20120125
  Receipt Date: 20120120
  Transmission Date: 20120608
  Serious: No
  Sender: FDA-Public Use
  Company Number: US-BAYER-2012-005641

PATIENT
  Sex: Male
  Weight: 86 kg

DRUGS (3)
  1. ASPIRIN [Suspect]
     Dosage: 500 MG, 2 TAB
     Route: 048
     Dates: start: 20111201
  2. STOOL SOFTENER [Concomitant]
  3. ELIGARD [Concomitant]

REACTIONS (1)
  - BURNING SENSATION [None]
